FAERS Safety Report 23333674 (Version 2)
Quarter: 2023Q4

REPORT INFORMATION
  Report Type: Report from Study
  Country: US (occurrence: US)
  Receive Date: 20231223
  Receipt Date: 20231227
  Transmission Date: 20240109
  Serious: Yes (Other)
  Sender: FDA-Public Use
  Company Number: US-ABBVIE-5551573

PATIENT
  Age: 3 Year
  Sex: Female
  Weight: 14 kg

DRUGS (2)
  1. HUMIRA [Suspect]
     Active Substance: ADALIMUMAB
     Indication: Juvenile idiopathic arthritis
     Dosage: FORM STRENGTH: 10MG CITRATE FREE
     Route: 058
     Dates: start: 20230512, end: 20231117
  2. METHOTREXATE [Concomitant]
     Active Substance: METHOTREXATE
     Indication: Juvenile idiopathic arthritis

REACTIONS (6)
  - Respiratory disorder [Recovered/Resolved]
  - Sinusitis [Recovered/Resolved]
  - Eye swelling [Recovered/Resolved]
  - Snoring [Recovering/Resolving]
  - Adenoidal hypertrophy [Recovered/Resolved]
  - Mouth breathing [Recovering/Resolving]

NARRATIVE: CASE EVENT DATE: 20230701
